FAERS Safety Report 25691216 (Version 1)
Quarter: 2025Q3

REPORT INFORMATION
  Report Type: Spontaneous
  Country: US (occurrence: US)
  Receive Date: 20250818
  Receipt Date: 20250818
  Transmission Date: 20251020
  Serious: No
  Sender: ROCHE
  Company Number: US-ROCHE-10000361080

PATIENT
  Sex: Female

DRUGS (2)
  1. XOLAIR PFS [Suspect]
     Active Substance: OMALIZUMAB
     Indication: Asthma
     Route: 058
     Dates: start: 202311
  2. XOLAIR PFS [Suspect]
     Active Substance: OMALIZUMAB
     Route: 058
     Dates: start: 202311

REACTIONS (1)
  - Hypersensitivity [Unknown]
